FAERS Safety Report 15839747 (Version 4)
Quarter: 2020Q3

REPORT INFORMATION
  Report Type: Spontaneous
  Country: US (occurrence: US)
  Receive Date: 20190117
  Receipt Date: 20200910
  Transmission Date: 20201102
  Serious: No
  Sender: FDA-Public Use
  Company Number: US-PFIZER INC-2019020142

PATIENT
  Age: 78 Year
  Sex: Male

DRUGS (1)
  1. INDOMETHACIN. [Suspect]
     Active Substance: INDOMETHACIN
     Dosage: UNK

REACTIONS (5)
  - Nausea [Unknown]
  - Off label use [Unknown]
  - Vomiting [Unknown]
  - Product use issue [Unknown]
  - Drug hypersensitivity [Unknown]
